FAERS Safety Report 8289600-9 (Version None)
Quarter: 2012Q2

REPORT INFORMATION
  Report Type: 
  Country: None (occurrence: None)
  Receive Date: 20120417
  Receipt Date: 20120409
  Transmission Date: 20120825
  Serious: Yes (Hospitalization)
  Sender: FDA-Public Use
  Company Number: JP-NAPPMUNDI-MAG-2012-0002095

PATIENT
  Sex: Male

DRUGS (13)
  1. FENTANYL CITRATE [Concomitant]
     Dosage: 8 MG, DAILY
     Dates: start: 20120215
  2. PREDNISOLONE [Concomitant]
     Indication: PROSTATE CANCER
     Dosage: 10 MG, UNK
     Route: 048
  3. DAIKENTYUTO [Concomitant]
     Dosage: 7.5 GRAM THREE TIMES
     Dates: start: 20111210
  4. OXYCODONE HCL [Suspect]
     Dosage: 40 MG, TID
     Route: 048
     Dates: start: 20111206, end: 20111210
  5. FENTANYL CITRATE [Concomitant]
     Dosage: 10 MG, DAILY
     Dates: start: 20120119
  6. FENTANYL CITRATE [Concomitant]
     Dosage: 8 MG, DAILY
     Dates: start: 20111227
  7. FENTANYL CITRATE [Concomitant]
     Dosage: 6 MG, DAILY
     Dates: start: 20111210
  8. MORPHINE [Concomitant]
     Indication: METASTASES TO BONE
     Dosage: 10 MG, DAILY
     Route: 048
     Dates: start: 20111108
  9. TAMSULOSIN HCL [Concomitant]
     Indication: PROSTATE CANCER
     Dosage: 0.2 MG, DAILY
     Route: 048
  10. MAGMITT [Concomitant]
     Indication: METASTASES TO BONE
     Dosage: 4500 MG, DAILY
     Route: 048
     Dates: start: 20111118, end: 20120214
  11. BIO-THREE [Concomitant]
     Indication: METASTASES TO BONE
     Dosage: 3 G, DAILY
     Route: 048
     Dates: start: 20111118, end: 20120214
  12. OXYCODONE HCL [Suspect]
     Dosage: 40 MG, BID
     Route: 048
     Dates: start: 20110919, end: 20111205
  13. MOBIC [Concomitant]
     Indication: METASTASES TO BONE
     Dosage: 10 MG, DAILY
     Route: 048
     Dates: start: 20111006

REACTIONS (3)
  - ILEUS [None]
  - PROTEIN-LOSING GASTROENTEROPATHY [None]
  - MEGACOLON [None]
